FAERS Safety Report 5874959-X (Version None)
Quarter: 2008Q3

REPORT INFORMATION
  Report Type: 
  Country: None (occurrence: None)
  Receive Date: 20080908
  Receipt Date: 20080908
  Transmission Date: 20090109
  Serious: Yes (Life-Threatening, Hospitalization)
  Sender: FDA-Public Use
  Company Number: None

PATIENT
  Age: 66 Year
  Sex: Male
  Weight: 79.3795 kg

DRUGS (1)
  1. REMICADE [Suspect]
     Indication: CROHN'S DISEASE
     Dosage: BASED ON WEIGHT EVERY 8 WEEKS IV DRIP
     Route: 041
     Dates: start: 20040710, end: 20061010

REACTIONS (4)
  - COCCIDIOIDOMYCOSIS [None]
  - CONDITION AGGRAVATED [None]
  - CROHN'S DISEASE [None]
  - INTESTINAL MASS [None]
